FAERS Safety Report 6511547-6 (Version None)
Quarter: 2009Q4

REPORT INFORMATION
  Report Type: 
  Country: None (occurrence: None)
  Receive Date: 20091222
  Receipt Date: 20090420
  Transmission Date: 20100525
  Serious: No
  Sender: FDA-Public Use
  Company Number: CA-ASTRAZENECA-2009UW09834

PATIENT
  Sex: Male

DRUGS (2)
  1. CRESTOR [Suspect]
     Indication: BLOOD CHOLESTEROL INCREASED
     Route: 048
     Dates: start: 20090401
  2. MAVIK [Concomitant]
     Indication: HYPERTENSION

REACTIONS (4)
  - ARTHRALGIA [None]
  - FREQUENT BOWEL MOVEMENTS [None]
  - JOINT STIFFNESS [None]
  - MUSCULOSKELETAL STIFFNESS [None]
